FAERS Safety Report 15740965 (Version 1)
Quarter: 2018Q4

REPORT INFORMATION
  Report Type: Spontaneous
  Country: IT (occurrence: IT)
  Receive Date: 20181219
  Receipt Date: 20181219
  Transmission Date: 20190205
  Serious: Yes (Other)
  Sender: FDA-Public Use
  Company Number: IT-SAKK-2018SA340655AA

PATIENT
  Age: 47 Year
  Sex: Female

DRUGS (1)
  1. LEFLUNOMIDE. [Suspect]
     Active Substance: LEFLUNOMIDE
     Indication: RHEUMATOID ARTHRITIS
     Dosage: 20 MG, QD
     Route: 048
     Dates: start: 20181018, end: 20181128

REACTIONS (1)
  - Ophthalmic herpes zoster [Recovered/Resolved]

NARRATIVE: CASE EVENT DATE: 20181027
